FAERS Safety Report 5493597-4 (Version None)
Quarter: 2007Q4

REPORT INFORMATION
  Report Type: 
  Country: None (occurrence: None)
  Receive Date: 20071023
  Receipt Date: 20071017
  Transmission Date: 20080405
  Serious: Yes (Hospitalization)
  Sender: FDA-Public Use
  Company Number: DE-JNJFOC-20070904741

PATIENT
  Age: 34 Year
  Sex: Male
  Weight: 70 kg

DRUGS (2)
  1. HALDOL [Suspect]
     Indication: ACUTE PSYCHOSIS
  2. TRANXILIUM [Concomitant]
     Route: 048

REACTIONS (1)
  - POLYURIA [None]
